FAERS Safety Report 8472684-2 (Version None)
Quarter: 2012Q2

REPORT INFORMATION
  Report Type: 
  Country: None (occurrence: None)
  Receive Date: 20120627
  Receipt Date: 20120620
  Transmission Date: 20120825
  Serious: Yes (Other)
  Sender: FDA-Public Use
  Company Number: CA-TEVA-344393USA

PATIENT
  Age: 36 Year
  Sex: Female

DRUGS (1)
  1. PLAN B [Suspect]
     Indication: POST COITAL CONTRACEPTION
     Dosage: ONE TABLET
     Route: 048
     Dates: start: 20120101, end: 20120101

REACTIONS (3)
  - ABORTION SPONTANEOUS [None]
  - UNINTENDED PREGNANCY [None]
  - INCORRECT DOSE ADMINISTERED [None]
